FAERS Safety Report 11711671 (Version 1)
Quarter: 2015Q4

REPORT INFORMATION
  Report Type: Spontaneous
  Country: US (occurrence: US)
  Receive Date: 20151104
  Receipt Date: 20151104
  Transmission Date: 20160304
  Serious: No
  Sender: FDA-Public Use
  Company Number: US-ELI_LILLY_AND_COMPANY-US201106002027

PATIENT
  Age: 63 Year
  Sex: Female

DRUGS (2)
  1. FORTEO [Suspect]
     Active Substance: TERIPARATIDE
     Indication: OSTEOPOROSIS
     Dosage: 20 UG, QD
     Route: 065
     Dates: start: 201003
  2. ENTOCORT [Concomitant]
     Active Substance: BUDESONIDE
     Indication: DIARRHOEA

REACTIONS (12)
  - Gastrointestinal disorder [Not Recovered/Not Resolved]
  - Hormone level abnormal [Unknown]
  - Bursitis [Unknown]
  - Hypovitaminosis [Unknown]
  - Colitis [Not Recovered/Not Resolved]
  - Calcium deficiency [Unknown]
  - Diverticulitis [Not Recovered/Not Resolved]
  - Hair disorder [Unknown]
  - Libido increased [Unknown]
  - Hypertension [Unknown]
  - Hiatus hernia [Not Recovered/Not Resolved]
  - Dysstasia [Unknown]

NARRATIVE: CASE EVENT DATE: 201012
